FAERS Safety Report 13455680 (Version 4)
Quarter: 2017Q3

REPORT INFORMATION
  Report Type: Spontaneous
  Country: DE (occurrence: DE)
  Receive Date: 20170419
  Receipt Date: 20170721
  Transmission Date: 20171127
  Serious: Yes (Life-Threatening, Hospitalization)
  Sender: FDA-Public Use
  Company Number: DE-SA-2017SA064698

PATIENT
  Age: 30 Year
  Sex: Female

DRUGS (1)
  1. LEMTRADA [Suspect]
     Active Substance: ALEMTUZUMAB
     Indication: RELAPSING-REMITTING MULTIPLE SCLEROSIS
     Route: 041
     Dates: start: 20170214, end: 20170216

REACTIONS (8)
  - Malaise [Recovered/Resolved]
  - C-reactive protein increased [Not Recovered/Not Resolved]
  - Lymphopenia [Unknown]
  - Aplasia [Recovered/Resolved]
  - Lung infection [Recovered/Resolved]
  - Pulmonary mycosis [Unknown]
  - Headache [Recovered/Resolved]
  - Neutropenia [Recovered/Resolved]

NARRATIVE: CASE EVENT DATE: 2017
